FAERS Safety Report 15946311 (Version 1)
Quarter: 2019Q1

REPORT INFORMATION
  Report Type: Spontaneous
  Country: IT (occurrence: IT)
  Receive Date: 20190211
  Receipt Date: 20190211
  Transmission Date: 20190417
  Serious: Yes (Other)
  Sender: FDA-Public Use
  Company Number: IT-AUROBINDO-AUR-APL-2019-006612

PATIENT

DRUGS (3)
  1. ZOLPIDEM FILM COATED TABLET 10 MG [Suspect]
     Active Substance: ZOLPIDEM TARTRATE
     Indication: PRODUCT USED FOR UNKNOWN INDICATION
     Dosage: UNK IN TOTAL
     Route: 048
     Dates: start: 20190116, end: 20190116
  2. DUROGESIC [Suspect]
     Active Substance: FENTANYL
     Indication: PRODUCT USED FOR UNKNOWN INDICATION
     Dosage: 3 DOSAGE FORM IN TOTAL
     Route: 062
     Dates: start: 20190116, end: 20190116
  3. LORAZEPAM 2.5MG TABLETS [Suspect]
     Active Substance: LORAZEPAM
     Indication: PRODUCT USED FOR UNKNOWN INDICATION
     Dosage: UNK IN TOTAL
     Route: 048
     Dates: start: 20190116, end: 20190116

REACTIONS (4)
  - Pain [None]
  - Coma [Unknown]
  - Intentional overdose [Unknown]
  - Intentional self-injury [Unknown]

NARRATIVE: CASE EVENT DATE: 20190116
